FAERS Safety Report 25778949 (Version 1)
Quarter: 2025Q3

REPORT INFORMATION
  Report Type: Spontaneous
  Country: US (occurrence: None)
  Receive Date: 20250908
  Receipt Date: 20250908
  Transmission Date: 20251021
  Serious: Yes (Hospitalization)
  Sender: FDA-CTU
  Company Number: None

PATIENT
  Age: 76 Year
  Sex: Female
  Weight: 58.5 kg

DRUGS (8)
  1. OSELTAMIVIR [Suspect]
     Active Substance: OSELTAMIVIR
     Indication: Influenza A virus test
     Route: 048
  2. ESOMEPRAZOLE MAGNESIUM [Concomitant]
     Active Substance: ESOMEPRAZOLE MAGNESIUM
  3. FLECAINIDE [Concomitant]
     Active Substance: FLECAINIDE
  4. DILTIAZEM [Concomitant]
     Active Substance: DILTIAZEM
  5. FLONASE [Concomitant]
     Active Substance: FLUTICASONE PROPIONATE
  6. CYANOCOBALAMIN [Concomitant]
     Active Substance: CYANOCOBALAMIN
  7. PROLIA [Concomitant]
     Active Substance: DENOSUMAB
  8. COENZYME Q10 [Concomitant]
     Active Substance: DIETARY SUPPLEMENT\UBIDECARENONE

REACTIONS (13)
  - Syncope [None]
  - Anal incontinence [None]
  - Loss of consciousness [None]
  - Skin laceration [None]
  - Subdural haematoma [None]
  - Post concussion syndrome [None]
  - Gait disturbance [None]
  - Confusional state [None]
  - Brain fog [None]
  - Aphasia [None]
  - Memory impairment [None]
  - Fatigue [None]
  - Vertigo [None]

NARRATIVE: CASE EVENT DATE: 20250417
